FAERS Safety Report 11364735 (Version 6)
Quarter: 2016Q4

REPORT INFORMATION
  Report Type: Spontaneous
  Country: US (occurrence: US)
  Receive Date: 20150811
  Receipt Date: 20161229
  Transmission Date: 20170206
  Serious: Yes (Other)
  Sender: FDA-Public Use
  Company Number: US-PFIZER INC-2015261866

PATIENT
  Age: 66 Year
  Sex: Female
  Weight: 78 kg

DRUGS (21)
  1. AROMASIN [Suspect]
     Active Substance: EXEMESTANE
     Indication: BREAST CANCER
     Dosage: 25 MG, 1X/DAY
     Route: 048
     Dates: start: 20131206
  2. HYDROCHLOROTHIAZIDE. [Concomitant]
     Active Substance: HYDROCHLOROTHIAZIDE
     Dosage: 25 MG, DAILY
     Route: 048
  3. CLONIDINE. [Concomitant]
     Active Substance: CLONIDINE
     Dosage: 0.1 MG, 2X/DAY
     Route: 048
     Dates: start: 20130528
  4. SYNTHROID [Concomitant]
     Active Substance: LEVOTHYROXINE SODIUM
     Dosage: 0.25 MG, 1X/DAY
  5. SYNTHROID [Concomitant]
     Active Substance: LEVOTHYROXINE SODIUM
     Dosage: 1.75 MG, 1X/DAY
  6. METFORMIN [Concomitant]
     Active Substance: METFORMIN HYDROCHLORIDE
     Dosage: 500 MG, 1X/DAY
     Dates: start: 2015
  7. VITAMIN D3 [Concomitant]
     Active Substance: CHOLECALCIFEROL
     Dosage: 5000 IU, WEEKLY (2 TABLETS EVERY 7DAYS)
     Route: 048
     Dates: start: 20130528
  8. CLONIDINE. [Concomitant]
     Active Substance: CLONIDINE
     Indication: HYPERTENSION
     Dosage: 1 MG, 3X/DAY
     Dates: start: 1997
  9. QVAR [Concomitant]
     Active Substance: BECLOMETHASONE DIPROPIONATE
     Dosage: 1 DF, DAILY (INHALE 1 PUFF EVERYDAY)
     Route: 055
  10. HYDROCHLOROTHIAZIDE. [Concomitant]
     Active Substance: HYDROCHLOROTHIAZIDE
     Indication: HYPERTENSION
     Dosage: 12.5 MG, UNK
     Dates: start: 2015
  11. SYNTHROID [Concomitant]
     Active Substance: LEVOTHYROXINE SODIUM
     Indication: THYROID DISORDER
     Dosage: 150 MG, 1X/DAY
     Route: 048
     Dates: start: 1979
  12. ZYRTEC [Concomitant]
     Active Substance: CETIRIZINE HYDROCHLORIDE
     Dosage: 10 MG, DAILY
     Route: 048
  13. SLEEP AID [Concomitant]
     Active Substance: DIPHENHYDRAMINE HYDROCHLORIDE\DOXYLAMINE SUCCINATE
     Dosage: 1 DF, AS NEEDED (1 CAPSULE EVERY DAY AT BEDTIME)
     Route: 048
     Dates: start: 20130528
  14. SYNTHROID [Concomitant]
     Active Substance: LEVOTHYROXINE SODIUM
     Dosage: 150 ?G, CYCLIC (EVERY DAY ON DAYS 1-5)
     Route: 048
  15. TRAMADOL. [Concomitant]
     Active Substance: TRAMADOL
     Dosage: 50 MG, AS NEEDED 4X/DAY
     Route: 048
  16. XOPENEX HFA [Concomitant]
     Active Substance: LEVALBUTEROL TARTRATE
     Dosage: 45 ?G, AS NEEDED (INHALE 2 PUFF EVERY 4 HOURS)
     Route: 055
  17. VITAMIN D2 [Concomitant]
     Active Substance: ERGOCALCIFEROL
     Dosage: 50000 IU, 2X/WEEK
     Route: 048
  18. TRAZODONE [Concomitant]
     Active Substance: TRAZODONE HYDROCHLORIDE
     Dosage: 50 MG, 3X/DAY
     Route: 048
     Dates: start: 20150601
  19. SYNTHROID [Concomitant]
     Active Substance: LEVOTHYROXINE SODIUM
     Dosage: 137 ?G, DAILY (EVERY DAY ON DAYS 1 AND 2)
     Route: 048
     Dates: start: 20130528
  20. ALEVE [Concomitant]
     Active Substance: NAPROXEN SODIUM
     Dosage: 220 MG, AS NEEDED (AT 1 TABLET EVERY 12 HOURS)
     Route: 048
     Dates: start: 20130528
  21. SYNTHROID [Concomitant]
     Active Substance: LEVOTHYROXINE SODIUM
     Dosage: 0.150 MG, 1X/DAY
     Dates: start: 1999

REACTIONS (11)
  - Joint stiffness [Unknown]
  - Weight increased [Unknown]
  - Disease progression [Recovering/Resolving]
  - Arthropathy [Unknown]
  - Bone pain [Unknown]
  - Alopecia [Not Recovered/Not Resolved]
  - Eye disorder [Unknown]
  - Influenza like illness [Unknown]
  - Diabetes mellitus [Not Recovered/Not Resolved]
  - Breast cancer [Recovering/Resolving]
  - Fatigue [Unknown]

NARRATIVE: CASE EVENT DATE: 2013
